FAERS Safety Report 13025446 (Version 1)
Quarter: 2016Q4

REPORT INFORMATION
  Report Type: Spontaneous
  Country: US (occurrence: US)
  Receive Date: 20161214
  Receipt Date: 20161214
  Transmission Date: 20170207
  Serious: No
  Sender: FDA-Public Use
  Company Number: US-009507513-1612USA000317

PATIENT

DRUGS (1)
  1. NUVARING [Suspect]
     Active Substance: ETHINYL ESTRADIOL\ETONOGESTREL
     Dosage: 11.7 MG ETONOGESTREL AND 2.7 MG ETHINYL ESTRADIOL / 1 RING THREE WEEKS
     Route: 067

REACTIONS (3)
  - Device breakage [Unknown]
  - No adverse event [Unknown]
  - Device expulsion [Unknown]
